FAERS Safety Report 7744741-7 (Version None)
Quarter: 2011Q3

REPORT INFORMATION
  Report Type: 
  Country: None (occurrence: None)
  Receive Date: 20110912
  Receipt Date: 20110912
  Transmission Date: 20111222
  Serious: Yes (Disabling)
  Sender: FDA-Public Use
  Company Number: None

PATIENT
  Age: 41 Year
  Sex: Male
  Weight: 201 kg

DRUGS (2)
  1. VANCOMYCIN [Suspect]
     Indication: LOCALISED INFECTION
     Dosage: 1000MG
     Route: 041
     Dates: start: 20100729, end: 20100729
  2. VANCOMYCIN [Suspect]
     Indication: STAPHYLOCOCCAL INFECTION
     Dosage: 1000MG
     Route: 041
     Dates: start: 20100729, end: 20100729

REACTIONS (1)
  - ANAPHYLACTIC REACTION [None]
